FAERS Safety Report 24838327 (Version 1)
Quarter: 2025Q1

REPORT INFORMATION
  Report Type: Spontaneous
  Country: US (occurrence: None)
  Receive Date: 20250113
  Receipt Date: 20250113
  Transmission Date: 20250408
  Serious: No
  Sender: FDA-CTU
  Company Number: None

PATIENT
  Age: 63 Year
  Sex: Female
  Weight: 68.4 kg

DRUGS (17)
  1. TAMOXIFEN [Suspect]
     Active Substance: TAMOXIFEN
     Indication: Intraductal proliferative breast lesion
     Route: 048
     Dates: start: 20210215, end: 20241230
  2. DICYCLOMINE [Concomitant]
     Active Substance: DICYCLOMINE HYDROCHLORIDE
  3. ATORVASTATIN [Concomitant]
     Active Substance: ATORVASTATIN
  4. ESTRADIOL [Concomitant]
     Active Substance: ESTRADIOL
  5. FLUTICASONE [Concomitant]
     Active Substance: FLUTICASONE
  6. METRONIDAZOLE [Concomitant]
     Active Substance: METRONIDAZOLE
  7. NITROGLYCERIN [Concomitant]
     Active Substance: NITROGLYCERIN
  8. RISEDRONATE SODIUM [Concomitant]
     Active Substance: RISEDRONATE SODIUM
  9. ACETAMINOPHEN [Concomitant]
     Active Substance: ACETAMINOPHEN
  10. CALCIUM CARBONATE [Concomitant]
     Active Substance: CALCIUM CARBONATE
  11. DM-Doxylamine-Acetminophen [Concomitant]
  12. DOXYLAMINE [Concomitant]
     Active Substance: DOXYLAMINE
  13. LIDOCAINE [Concomitant]
     Active Substance: LIDOCAINE
  14. FISH OIL\OMEGA-3 FATTY ACIDS [Concomitant]
     Active Substance: FISH OIL\OMEGA-3 FATTY ACIDS
  15. VITAMIN D3 [Concomitant]
     Active Substance: CHOLECALCIFEROL
  16. VITAMIN E [Concomitant]
     Active Substance: .ALPHA.-TOCOPHEROL
  17. SIMETHICONE (DIMETHICONE) [Concomitant]
     Active Substance: DIMETHICONE

REACTIONS (2)
  - Anal fissure [None]
  - Hot flush [None]

NARRATIVE: CASE EVENT DATE: 20250113
